FAERS Safety Report 7741651-6 (Version None)
Quarter: 2011Q3

REPORT INFORMATION
  Report Type: 
  Country: None (occurrence: None)
  Receive Date: 20110912
  Receipt Date: 20110830
  Transmission Date: 20111222
  Serious: Yes (Hospitalization)
  Sender: FDA-Public Use
  Company Number: JP-BRISTOL-MYERS SQUIBB COMPANY-15982218

PATIENT
  Age: 60 Year
  Sex: Male

DRUGS (8)
  1. CRESTOR [Concomitant]
  2. METFORMIN HCL [Suspect]
     Indication: DIABETES MELLITUS
     Route: 048
     Dates: start: 20110516, end: 20110630
  3. ACTOS [Concomitant]
  4. LEVOTHYROXINE SODIUM [Concomitant]
  5. METFORMIN HCL [Suspect]
     Indication: DIABETES MELLITUS
     Route: 048
  6. ASPIRIN [Concomitant]
     Dosage: NICHIASPIRIN
  7. LASIX [Concomitant]
  8. NOVOLIN 50R [Concomitant]
     Dosage: 8/MORNING AND 4/EVENING

REACTIONS (1)
  - METABOLIC ENCEPHALOPATHY [None]
